FAERS Safety Report 24833069 (Version 3)
Quarter: 2025Q1

REPORT INFORMATION
  Report Type: Spontaneous
  Country: DE (occurrence: DE)
  Receive Date: 20250111
  Receipt Date: 20250123
  Transmission Date: 20250409
  Serious: Yes (Other)
  Sender: ABBVIE
  Company Number: DE-MYLANLABS-2025M1000878

PATIENT
  Age: 23 Year
  Sex: Male
  Weight: 60 kg

DRUGS (2)
  1. PANCRELIPASE [Suspect]
     Active Substance: PANCRELIPASE
     Indication: Product used for unknown indication
     Dosage: 15 DOSAGE FORM, QD (15 TABLETS A DAY)?35000?LIPASE UNITS, GASTRO-RESISTANT
     Route: 048
  2. PANCRELIPASE [Suspect]
     Active Substance: PANCRELIPASE
     Indication: Product used for unknown indication
     Dosage: 25 DOSAGE FORM, QD (25 TABLETS A DAY)?25000?LIPASE UNITS, GASTRO-RESISTANT
     Route: 048

REACTIONS (1)
  - Blood elastase decreased [Unknown]
